FAERS Safety Report 14242041 (Version 1)
Quarter: 2017Q4

REPORT INFORMATION
  Report Type: Spontaneous
  Country: AT (occurrence: AT)
  Receive Date: 20171201
  Receipt Date: 20171201
  Transmission Date: 20180321
  Serious: Yes (Hospitalization)
  Sender: FDA-Public Use
  Company Number: AT-TEVA-2017-AT-827961

PATIENT
  Age: 64 Year
  Sex: Male

DRUGS (5)
  1. MIXTARD HUMAN 70/30 [Interacting]
     Active Substance: INSULIN HUMAN
     Indication: TYPE 2 DIABETES MELLITUS
     Dosage: 3.5 MG OF NEUTRAL PROTAMINE HAGEDORN PER 1 ML SUSPENSION
     Route: 065
  2. NOVOMIX [Interacting]
     Active Substance: INSULIN ASPART
     Indication: TYPE 2 DIABETES MELLITUS
     Dosage: 3.5 MG OF NEUTRAL PROTAMINE HAGEDORN PER 1 ML SUSPENSION
     Route: 065
  3. PROTAMINE SULFATE. [Interacting]
     Active Substance: PROTAMINE SULFATE
     Indication: ANTICOAGULANT THERAPY
     Route: 065
  4. METHYLPREDNISOLONE. [Concomitant]
     Active Substance: METHYLPREDNISOLONE
     Indication: HEART TRANSPLANT REJECTION
     Route: 065
  5. HEPARIN [Suspect]
     Active Substance: HEPARIN SODIUM
     Indication: ANTICOAGULANT THERAPY
     Dosage: 3768-17146 IU/DAY
     Route: 065

REACTIONS (3)
  - Drug interaction [Unknown]
  - Drug specific antibody [Unknown]
  - Thrombocytopenia [Unknown]
